FAERS Safety Report 25343006 (Version 1)
Quarter: 2025Q2

REPORT INFORMATION
  Report Type: Spontaneous
  Country: FR (occurrence: FR)
  Receive Date: 20250521
  Receipt Date: 20250521
  Transmission Date: 20250716
  Serious: Yes (Other)
  Sender: JOHNSON AND JOHNSON
  Company Number: FR-BAYER-2025A066966

PATIENT
  Age: 51 Year
  Sex: Female

DRUGS (2)
  1. RIVAROXABAN [Suspect]
     Active Substance: RIVAROXABAN
     Indication: Product used for unknown indication
     Dates: start: 2014
  2. FLUINDIONE [Suspect]
     Active Substance: FLUINDIONE
     Indication: Product used for unknown indication

REACTIONS (2)
  - Purpura [Not Recovered/Not Resolved]
  - Vasculitis [Unknown]
